FAERS Safety Report 12395558 (Version 1)
Quarter: 2016Q2

REPORT INFORMATION
  Report Type: Spontaneous
  Country: DE (occurrence: DE)
  Receive Date: 20160523
  Receipt Date: 20160523
  Transmission Date: 20160815
  Serious: Yes (Death)
  Sender: FDA-Public Use
  Company Number: DE-PFIZER INC-2016263222

PATIENT
  Age: 38 Year
  Sex: Female
  Weight: 97 kg

DRUGS (5)
  1. RANITIDINE RATIOPHARM [Concomitant]
     Indication: SUPPORTIVE CARE
     Dosage: 50MG/5ML, 1-0-0
     Route: 042
     Dates: start: 20160418, end: 20160420
  2. TAVANIC [Concomitant]
     Active Substance: LEVOFLOXACIN
     Indication: URINARY TRACT INFECTION
     Dosage: 500 MG, 1-0-0
     Route: 048
     Dates: start: 20160418, end: 20160420
  3. METHYLPREDNISOLONE SODIUM SUCCINATE. [Suspect]
     Active Substance: METHYLPREDNISOLONE SODIUM SUCCINATE
     Indication: SUPPORTIVE CARE
     Dosage: 1 G, 1-0-0
     Route: 042
     Dates: start: 20160418, end: 20160420
  4. TAVEGIL [Concomitant]
     Active Substance: CLEMASTINE FUMARATE
     Indication: SUPPORTIVE CARE
     Dosage: AMPULS, 1-0-0
     Route: 042
     Dates: start: 20160418, end: 20160420
  5. LEMTRADA [Suspect]
     Active Substance: ALEMTUZUMAB
     Indication: MULTIPLE SCLEROSIS
     Dosage: 12 MG, 1-0-0
     Route: 042
     Dates: start: 20160418, end: 20160420

REACTIONS (6)
  - Seizure [Fatal]
  - Cerebral haemorrhage [Fatal]
  - Bradycardia [Fatal]
  - Nausea [Fatal]
  - Vomiting [Fatal]
  - Hypertension [Fatal]

NARRATIVE: CASE EVENT DATE: 20160421
